FAERS Safety Report 8987751 (Version 2)
Quarter: 2014Q1

REPORT INFORMATION
  Report Type: Report from Study
  Country: US (occurrence: US)
  Receive Date: 20121227
  Receipt Date: 20140120
  Transmission Date: 20141002
  Serious: Yes (Other)
  Sender: FDA-Public Use
  Company Number: US-ROCHE-1167186

PATIENT
  Sex: Female

DRUGS (1)
  1. RANIBIZUMAB [Suspect]
     Indication: MACULAR DEGENERATION
     Route: 065

REACTIONS (4)
  - Blindness [Unknown]
  - Injection site pain [Unknown]
  - Ocular hyperaemia [Unknown]
  - Visual impairment [Unknown]
